FAERS Safety Report 5608063-2 (Version None)
Quarter: 2008Q1

REPORT INFORMATION
  Report Type: 
  Country: None (occurrence: None)
  Receive Date: 20080130
  Receipt Date: 20080122
  Transmission Date: 20080703
  Serious: Yes (Death)
  Sender: FDA-Public Use
  Company Number: US-KINGPHARMUSA00001-K200800085

PATIENT

DRUGS (6)
  1. ALTACE [Suspect]
     Dosage: UNK, UNK
     Route: 048
  2. DILTIAZEM HCL [Suspect]
  3. FOSINOPRIL SODIUM [Suspect]
  4. CELECOXIB [Suspect]
  5. PROPOXYPHENE HCL AND ACETAMINOPHEN [Suspect]
  6. OLMESARTAN MEDOXOMIL [Suspect]

REACTIONS (1)
  - COMPLETED SUICIDE [None]
